FAERS Safety Report 6420938-3 (Version None)
Quarter: 2009Q4

REPORT INFORMATION
  Report Type: 
  Country: None (occurrence: None)
  Receive Date: 20091028
  Receipt Date: 20091014
  Transmission Date: 20100525
  Serious: No
  Sender: FDA-Public Use
  Company Number: 2009100040

PATIENT
  Age: 66 Year
  Sex: Female

DRUGS (3)
  1. ONSOLIS [Suspect]
     Indication: CHRONIC FATIGUE SYNDROME
  2. ONSOLIS [Suspect]
     Indication: FIBROMYALGIA
  3. ONSOLIS [Suspect]
     Indication: MIGRAINE

REACTIONS (1)
  - INTERCEPTED DRUG DISPENSING ERROR [None]
